FAERS Safety Report 23027329 (Version 1)
Quarter: 2023Q4

REPORT INFORMATION
  Report Type: Spontaneous
  Country: AU (occurrence: AU)
  Receive Date: 20231004
  Receipt Date: 20231004
  Transmission Date: 20240110
  Serious: Yes (Other)
  Sender: FDA-Public Use
  Company Number: AU-AMGEN-AUSSP2023172737

PATIENT
  Age: 39 Year
  Sex: Female

DRUGS (4)
  1. XGEVA [Suspect]
     Active Substance: DENOSUMAB
     Indication: Product used for unknown indication
     Dosage: UNK
     Route: 065
  2. CELECOXIB [Concomitant]
     Active Substance: CELECOXIB
     Dosage: UNK
  3. DACARBAZINE [Concomitant]
     Active Substance: DACARBAZINE
     Dosage: UNK
  4. PREGABALIN [Concomitant]
     Active Substance: PREGABALIN
     Dosage: UNK

REACTIONS (5)
  - Metastatic malignant melanoma [Unknown]
  - Leukoerythroblastic anaemia [Unknown]
  - Thrombocytopenia [Unknown]
  - Eastern Cooperative Oncology Group performance status worsened [Unknown]
  - Bone pain [Unknown]
